FAERS Safety Report 20344238 (Version 2)
Quarter: 2022Q1

REPORT INFORMATION
  Report Type: Report from Study
  Country: IT (occurrence: IT)
  Receive Date: 20220118
  Receipt Date: 20220216
  Transmission Date: 20220424
  Serious: Yes (Death)
  Sender: FDA-Public Use
  Company Number: None

PATIENT
  Age: 71 Year
  Sex: Female

DRUGS (2)
  1. ACETAMINOPHEN\CODEINE PHOSPHATE [Interacting]
     Active Substance: ACETAMINOPHEN\CODEINE PHOSPHATE
     Route: 065
  2. ASPIRIN [Interacting]
     Active Substance: ASPIRIN
     Dosage: 1 DF; CARDIOASPIRIN 100 MG GASTRORESISTANT TABLETS
     Route: 048

REACTIONS (2)
  - Melaena [Fatal]
  - Drug interaction [Fatal]

NARRATIVE: CASE EVENT DATE: 20210620
